FAERS Safety Report 6574737-2 (Version None)
Quarter: 2010Q1

REPORT INFORMATION
  Report Type: 
  Country: None (occurrence: None)
  Receive Date: 20100202
  Receipt Date: 20100122
  Transmission Date: 20100710
  Serious: Yes (Hospitalization)
  Sender: FDA-Public Use
  Company Number: 20108041

PATIENT
  Age: 55 Year
  Sex: Female

DRUGS (1)
  1. LIORESAL [Suspect]
     Indication: MUSCLE SPASTICITY
     Dosage: 530-430 MCG, DAILY, INTRATHECAL

REACTIONS (4)
  - ANXIETY [None]
  - DRUG INEFFECTIVE [None]
  - GAIT DISTURBANCE [None]
  - SPEECH DISORDER [None]
